FAERS Safety Report 4747190-9 (Version None)
Quarter: 2005Q3

REPORT INFORMATION
  Report Type: 
  Country: None (occurrence: None)
  Receive Date: 20050815
  Receipt Date: 20050208
  Transmission Date: 20060218
  Serious: Yes (Hospitalization)
  Sender: FDA-Public Use
  Company Number: MEDI-0002862

PATIENT
  Age: 2 Month
  Sex: Male

DRUGS (2)
  1. SYNAGIS [Suspect]
     Indication: ANTIVIRAL PROPHYLAXIS
     Dosage: 1 IN 30 D, INTRAMUSCULAR
     Route: 030
     Dates: start: 20041201, end: 20050113
  2. SYNAGIS [Suspect]
     Indication: ANTIVIRAL PROPHYLAXIS
     Dosage: 1 IN 30 D, INTRAMUSCULAR
     Route: 030
     Dates: start: 20041201

REACTIONS (7)
  - APNOEA [None]
  - BRONCHIOLITIS [None]
  - COUGH [None]
  - PNEUMONIA RESPIRATORY SYNCYTIAL VIRAL [None]
  - PYREXIA [None]
  - RHINORRHOEA [None]
  - TACHYPNOEA [None]
